FAERS Safety Report 21080047 (Version 8)
Quarter: 2022Q4

REPORT INFORMATION
  Report Type: Spontaneous
  Country: CA (occurrence: CA)
  Receive Date: 20220714
  Receipt Date: 20221012
  Transmission Date: 20230113
  Serious: Yes (Other)
  Sender: FDA-Public Use
  Company Number: CA-CELLTRION INC.-2022CA007395

PATIENT

DRUGS (20)
  1. INFLECTRA [Suspect]
     Active Substance: INFLIXIMAB-DYYB
     Indication: Colitis ulcerative
     Dosage: 400 MG, WEEKS 0, 2, 6 THEN MAINTENANCE EVERY 8 WEEKS (WEEK 0 DOSE)
     Route: 042
     Dates: start: 20220421
  2. INFLECTRA [Suspect]
     Active Substance: INFLIXIMAB-DYYB
     Dosage: 800 MG, EVERY 4 WEEKS
     Route: 042
     Dates: start: 20220421
  3. INFLECTRA [Suspect]
     Active Substance: INFLIXIMAB-DYYB
     Dosage: 400 MG, WEEKS 0, 2, 6 THEN MAINTENANCE EVERY 8 WEEKS (WEEK 2 DOSE)
     Route: 042
     Dates: start: 20220504
  4. INFLECTRA [Suspect]
     Active Substance: INFLIXIMAB-DYYB
     Dosage: 400 MG, WEEKS 0, 2, 6 THEN MAINTENANCE EVERY 8 WEEKS
     Route: 042
     Dates: start: 20220504
  5. INFLECTRA [Suspect]
     Active Substance: INFLIXIMAB-DYYB
     Dosage: 400 MG, WEEKS 0, 2, 6 THEN MAINTENANCE EVERY 8 WEEKS
     Route: 042
     Dates: start: 20220601
  6. INFLECTRA [Suspect]
     Active Substance: INFLIXIMAB-DYYB
     Dosage: 400 MG EVERY 8 WEEKS
     Route: 042
     Dates: start: 20220601
  7. INFLECTRA [Suspect]
     Active Substance: INFLIXIMAB-DYYB
     Dosage: 400 MG, (URGENT DOSE)
     Route: 042
     Dates: start: 20220607
  8. INFLECTRA [Suspect]
     Active Substance: INFLIXIMAB-DYYB
     Dosage: 800 MG, EVERY 4 WEEKS
     Route: 042
     Dates: start: 20220607
  9. INFLECTRA [Suspect]
     Active Substance: INFLIXIMAB-DYYB
     Dosage: 800 MG, EVERY 4 WEEKS
     Route: 042
     Dates: start: 20220609
  10. INFLECTRA [Suspect]
     Active Substance: INFLIXIMAB-DYYB
     Dosage: 800 MG, EVERY 4 WEEKS
     Route: 042
     Dates: start: 20220622
  11. INFLECTRA [Suspect]
     Active Substance: INFLIXIMAB-DYYB
     Dosage: 800 MG, EVERY 4 WEEKS
     Route: 042
     Dates: start: 20220704
  12. INFLECTRA [Suspect]
     Active Substance: INFLIXIMAB-DYYB
     Dosage: 800 MG, EVERY 4 WEEKS
     Route: 042
     Dates: start: 20220728
  13. INFLECTRA [Suspect]
     Active Substance: INFLIXIMAB-DYYB
     Dosage: 800 MG, EVERY 4 WEEKS
     Route: 042
     Dates: start: 20220825, end: 20220915
  14. ACETAMINOPHEN [Concomitant]
     Active Substance: ACETAMINOPHEN
     Indication: Premedication
     Dosage: 325 MG
     Dates: start: 20220421, end: 20220421
  15. BUDESONIDE [Concomitant]
     Active Substance: BUDESONIDE
     Dosage: 9 MG
  16. METHOTREXATE [Concomitant]
     Active Substance: METHOTREXATE
     Indication: Crohn^s disease
     Dosage: 15.5 MG, WEEKLY
     Route: 048
     Dates: start: 2022
  17. METHOTREXATE [Concomitant]
     Active Substance: METHOTREXATE
     Dosage: 12.5 MG, WEEKLY
     Route: 048
  18. MESALAMINE [Concomitant]
     Active Substance: MESALAMINE
     Indication: Crohn^s disease
     Dosage: 1.2 MG, DAILY
     Route: 048
     Dates: start: 2022
  19. MESALAMINE [Concomitant]
     Active Substance: MESALAMINE
     Dosage: 1.2 MG, 4X/DAY
     Route: 048
  20. MESALAMINE [Concomitant]
     Active Substance: MESALAMINE
     Dosage: UNK, 4X/DAY
     Route: 048

REACTIONS (17)
  - Haematochezia [Not Recovered/Not Resolved]
  - Drug ineffective [Unknown]
  - Condition aggravated [Not Recovered/Not Resolved]
  - Headache [Recovered/Resolved]
  - Myalgia [Recovered/Resolved]
  - Weight decreased [Unknown]
  - Anal haemorrhage [Unknown]
  - Frequent bowel movements [Not Recovered/Not Resolved]
  - Impaired quality of life [Unknown]
  - Abdominal pain upper [Unknown]
  - Nausea [Unknown]
  - Weight increased [Unknown]
  - Faecal calprotectin increased [Unknown]
  - Intentional product use issue [Unknown]
  - Off label use [Unknown]
  - Off label use [Unknown]
  - Off label use [Unknown]

NARRATIVE: CASE EVENT DATE: 20220501
